FAERS Safety Report 4829651-7 (Version None)
Quarter: 2005Q4

REPORT INFORMATION
  Report Type: 
  Country: None (occurrence: None)
  Receive Date: 20051116
  Receipt Date: 20050930
  Transmission Date: 20060501
  Serious: Yes (Death, Hospitalization)
  Sender: FDA-Public Use
  Company Number: US-MERCK-0510USA02067

PATIENT
  Age: 79 Year
  Sex: Female
  Weight: 50 kg

DRUGS (3)
  1. VIOXX [Suspect]
     Route: 048
     Dates: start: 20011001, end: 20011118
  2. FLUOCINONIDE [Concomitant]
     Route: 065
  3. NORVASC [Concomitant]
     Route: 065

REACTIONS (3)
  - CARDIAC ARREST [None]
  - MYOCARDIAL INFARCTION [None]
  - SUDDEN DEATH [None]
